FAERS Safety Report 5123776-7 (Version None)
Quarter: 2006Q4

REPORT INFORMATION
  Report Type: 
  Country: None (occurrence: None)
  Receive Date: 20061010
  Receipt Date: 20061003
  Transmission Date: 20070319
  Serious: Yes (Hospitalization)
  Sender: FDA-Public Use
  Company Number: AU-ROCHE-465763

PATIENT
  Age: 16 Year
  Sex: Male
  Weight: 64 kg

DRUGS (1)
  1. ACCUTANE [Suspect]
     Indication: ACNE
     Dosage: DOSING FREQUENCY REPORTED AS THREE TIMES.
     Route: 048
     Dates: start: 20060419, end: 20060724

REACTIONS (13)
  - ANHEDONIA [None]
  - ARTHRALGIA [None]
  - DEPRESSED MOOD [None]
  - DYSPNOEA [None]
  - FATIGUE [None]
  - HEADACHE [None]
  - MYALGIA [None]
  - NAUSEA [None]
  - PHOTOPHOBIA [None]
  - PLEURITIC PAIN [None]
  - SOCIAL AVOIDANT BEHAVIOUR [None]
  - VOMITING [None]
  - WHEEZING [None]
